FAERS Safety Report 6564625-X (Version None)
Quarter: 2010Q1

REPORT INFORMATION
  Report Type: 
  Country: None (occurrence: None)
  Receive Date: 20100201
  Receipt Date: 20100126
  Transmission Date: 20100710
  Serious: Yes (Other)
  Sender: FDA-Public Use
  Company Number: PHHY2009BR49220

PATIENT
  Age: 77 Year
  Sex: Female
  Weight: 70 kg

DRUGS (2)
  1. DIOVAN HCT [Suspect]
     Indication: HYPERTENSION
     Dosage: 1 TABLET IN THE MORNING
     Route: 065
  2. NOVALGINA [Concomitant]
     Indication: HEADACHE
     Dosage: 30-35 DROPS A DAY
     Route: 048

REACTIONS (2)
  - HYPERTENSION [None]
  - VISUAL ACUITY REDUCED [None]
